FAERS Safety Report 22115835 (Version 1)
Quarter: 2023Q1

REPORT INFORMATION
  Report Type: Spontaneous
  Country: HR (occurrence: HR)
  Receive Date: 20230320
  Receipt Date: 20230320
  Transmission Date: 20230418
  Serious: Yes (Other)
  Sender: FDA-Public Use
  Company Number: None

PATIENT
  Age: 68 Year
  Sex: Female

DRUGS (2)
  1. OXAZEPAM [Suspect]
     Active Substance: OXAZEPAM
     Indication: Product used for unknown indication
     Dosage: UNK
     Dates: start: 20230130, end: 20230131
  2. QUETIAPINE FUMARATE [Suspect]
     Active Substance: QUETIAPINE FUMARATE
     Indication: Product used for unknown indication
     Dates: start: 20230130, end: 20230131

REACTIONS (3)
  - Altered state of consciousness [Recovering/Resolving]
  - Somnolence [Unknown]
  - Intentional overdose [Recovering/Resolving]

NARRATIVE: CASE EVENT DATE: 20230131
